FAERS Safety Report 21233582 (Version 5)
Quarter: 2025Q4

REPORT INFORMATION
  Report Type: Spontaneous
  Country: GB (occurrence: GB)
  Receive Date: 20220819
  Receipt Date: 20251215
  Transmission Date: 20260117
  Serious: Yes (Hospitalization)
  Sender: BRISTOL-MYERS SQUIBB COMPANY
  Company Number: GB-TAKEDA-2021TUS015120

PATIENT
  Sex: Female

DRUGS (15)
  1. REVLIMID [Suspect]
     Active Substance: LENALIDOMIDE
     Indication: Plasma cell myeloma refractory
     Dosage: DOSAGE TEXT: 10 MILLIGRAM, Q3WEEKS NUMBER OF SEPARATE DOSES:
  2. REVLIMID [Suspect]
     Active Substance: LENALIDOMIDE
     Dosage: 10 MILLIGRAM, QD NUMBER OF SEPARATE DOSES
     Route: 048
     Dates: start: 201805
  3. DEXAMETHASONE [Suspect]
     Active Substance: DEXAMETHASONE
     Indication: Plasma cell myeloma refractory
     Dosage: DOSAGE TEXT: 10 MILLIGRAM; NUMBER OF SEPARATE DOSES:
  4. DEXAMETHASONE [Suspect]
     Active Substance: DEXAMETHASONE
     Dosage: 10 MILLIGRAM, EVERY WEEK
  5. IXAZOMIB [Suspect]
     Active Substance: IXAZOMIB
     Indication: Plasma cell myeloma refractory
     Dosage: DOSAGE TEXT: 2.3 MILLIGRAM, 1/WEEK NUMBER OF SEPARATE DOSES:
     Route: 048
     Dates: start: 201805
  6. IXAZOMIB [Suspect]
     Active Substance: IXAZOMIB
     Dosage: 5 MILLIGRAM, EVERY WEEK
     Route: 048
     Dates: start: 201805
  7. IXAZOMIB [Suspect]
     Active Substance: IXAZOMIB
     Dosage: 3 MILLIGRAM, EVERY WEEK
     Route: 048
     Dates: start: 201805
  8. IXAZOMIB [Suspect]
     Active Substance: IXAZOMIB
     Dosage: 1 MILLIGRAM, EVERY WEEK
     Route: 048
     Dates: start: 201805
  9. ACYCLOVIR [Suspect]
     Active Substance: ACYCLOVIR
     Indication: Product used for unknown indication
     Dosage: DOSAGE TEXT: 400 MILLIGRAM, BID NUMBER OF SEPARATE DOSES:
  10. ACYCLOVIR [Suspect]
     Active Substance: ACYCLOVIR
     Dosage: 40 MILLIGRAM
  11. ACYCLOVIR [Suspect]
     Active Substance: ACYCLOVIR
     Dosage: 40 MILLIGRAM
  12. METOCLOPRAMIDE [Suspect]
     Active Substance: METOCLOPRAMIDE
     Indication: Product used for unknown indication
     Dosage: DOSAGE TEXT: 10 MILLIGRAM, QD NUMBER OF SEPARATE DOSES:
  13. LOPERAMIDE [Suspect]
     Active Substance: LOPERAMIDE
     Indication: Product used for unknown indication
     Dosage: DOSAGE TEXT: 2 MILLIGRAM; NUMBER OF SEPARATE DOSES:
  14. LANSOPRAZOLE [Suspect]
     Active Substance: LANSOPRAZOLE
     Indication: Product used for unknown indication
     Dosage: 30 MILLIGRAM, ONCE A DAY
  15. LANSOPRAZOLE [Suspect]
     Active Substance: LANSOPRAZOLE
     Dosage: 3 MILLIGRAM

REACTIONS (6)
  - Chronic obstructive pulmonary disease [Unknown]
  - Panic attack [Not Recovered/Not Resolved]
  - Swelling [Unknown]
  - Peripheral swelling [Unknown]
  - Pain [Not Recovered/Not Resolved]
  - Product dose omission issue [Unknown]
